FAERS Safety Report 9680995 (Version 2)
Quarter: 2013Q4

REPORT INFORMATION
  Report Type: Spontaneous
  Country: US (occurrence: US)
  Receive Date: 20131111
  Receipt Date: 20131206
  Transmission Date: 20140711
  Serious: No
  Sender: FDA-Public Use
  Company Number: US-009507513-1311USA001817

PATIENT
  Sex: Female

DRUGS (2)
  1. DULERA [Suspect]
     Indication: ASTHMA
     Dosage: 2 DF, BID; 2 PUFFS IN AM/2 PUFFS IN PM
     Route: 055
     Dates: start: 20131028
  2. PROVENTIL [Concomitant]

REACTIONS (5)
  - Choking [Unknown]
  - Throat tightness [Unknown]
  - Cough [Unknown]
  - Drug dose omission [Unknown]
  - Product quality issue [Unknown]
